FAERS Safety Report 4708771-1 (Version None)
Quarter: 2005Q3

REPORT INFORMATION
  Report Type: 
  Country: None (occurrence: None)
  Receive Date: 20050705
  Receipt Date: 20050627
  Transmission Date: 20060218
  Serious: Yes (Death)
  Sender: FDA-Public Use
  Company Number: 2005093049

PATIENT
  Age: 86 Year
  Sex: Male

DRUGS (2)
  1. CITALOR (ATORVASTATIN) [Suspect]
     Indication: DYSLIPIDAEMIA
     Dosage: 10 MG (10 MG, 1 IN 1 D), ORAL
     Route: 048
     Dates: start: 20031201, end: 20041019
  2. XALATAN [Suspect]
     Indication: ILL-DEFINED DISORDER

REACTIONS (1)
  - BRAIN DAMAGE [None]
